FAERS Safety Report 18410296 (Version 1)
Quarter: 2020Q4

REPORT INFORMATION
  Report Type: Spontaneous
  Country: PL (occurrence: PL)
  Receive Date: 20201021
  Receipt Date: 20201021
  Transmission Date: 20210114
  Serious: Yes (Other)
  Sender: FDA-Public Use
  Company Number: NVSC2020PL280997

PATIENT
  Age: 66 Year

DRUGS (2)
  1. PACLITAXEL. [Suspect]
     Active Substance: PACLITAXEL
     Indication: ADENOCARCINOMA
     Dosage: UNK (6 COURSES)
     Route: 065
     Dates: start: 201106, end: 201111
  2. CARBOPLATIN. [Suspect]
     Active Substance: CARBOPLATIN
     Indication: ADENOCARCINOMA
     Dosage: UNK (6 COURSES)
     Route: 065
     Dates: start: 201106, end: 201111

REACTIONS (4)
  - Therapy partial responder [Unknown]
  - Malignant neoplasm progression [Unknown]
  - Adenocarcinoma [Unknown]
  - Product use in unapproved indication [Unknown]

NARRATIVE: CASE EVENT DATE: 2014
